FAERS Safety Report 10507826 (Version 4)
Quarter: 2014Q4

REPORT INFORMATION
  Report Type: Spontaneous
  Country: US (occurrence: IT)
  Receive Date: 20141009
  Receipt Date: 20141223
  Transmission Date: 20150528
  Serious: Yes (Disabling)
  Sender: FDA-Public Use
  Company Number: IT-FRI-1000071335

PATIENT
  Age: 78 Year
  Sex: Male

DRUGS (5)
  1. TRITTICO [Concomitant]
     Active Substance: TRAZODONE HYDROCHLORIDE
     Dates: start: 201408, end: 20140924
  2. ASENAPINE [Suspect]
     Active Substance: ASENAPINE
     Indication: VASCULAR DEMENTIA
  3. ASENAPINE [Suspect]
     Active Substance: ASENAPINE
     Indication: PSYCHOTIC DISORDER
     Dosage: 10 MG
     Route: 060
     Dates: start: 201408, end: 20140924
  4. DEPAKINE [Concomitant]
     Active Substance: VALPROATE SODIUM
     Dates: start: 201408, end: 20140924
  5. RIVASTIGMINE [Concomitant]
     Active Substance: RIVASTIGMINE

REACTIONS (4)
  - Parkinsonism [Unknown]
  - Cerebrovascular accident [Recovered/Resolved]
  - Off label use [Recovered/Resolved]
  - Inappropriate schedule of drug administration [Recovered/Resolved]

NARRATIVE: CASE EVENT DATE: 201408
